FAERS Safety Report 8410791-0 (Version None)
Quarter: 2012Q2

REPORT INFORMATION
  Report Type: 
  Country: None (occurrence: None)
  Receive Date: 20120529
  Receipt Date: 20051205
  Transmission Date: 20120825
  Serious: Yes (Hospitalization)
  Sender: FDA-Public Use
  Company Number: 15691-USA-05-3033

PATIENT
  Age: 69 Year
  Sex: Male

DRUGS (17)
  1. ACTOS [Concomitant]
  2. MULTIVITAMIN [Concomitant]
  3. DIGOXIN [Concomitant]
  4. COREG [Concomitant]
  5. LEVOXYL [Concomitant]
  6. PROTONIX [Concomitant]
  7. PRAVACHOL [Concomitant]
  8. PAXIL [Concomitant]
  9. METOLAZONE [Concomitant]
  10. B12 VITAMIN (CYANOCOBALAMIN) [Concomitant]
  11. TOLVAPTAN (TOLVAPTAN(V4.1)) 30MG [Suspect]
     Indication: CARDIAC FAILURE CONGESTIVE
     Dosage: 30 MG, QD, ORAL
     Route: 048
     Dates: start: 20050901
  12. ARANESP [Concomitant]
  13. AMIODARONE HCL [Concomitant]
  14. POTASSIUM CHLORIDE [Concomitant]
  15. TRICOR [Concomitant]
  16. VITAMIN BP [Concomitant]
  17. BUMEX [Concomitant]

REACTIONS (4)
  - HYPOTENSION [None]
  - RASH [None]
  - RENAL FAILURE ACUTE [None]
  - DIALYSIS [None]
